FAERS Safety Report 5508040-6 (Version None)
Quarter: 2007Q4

REPORT INFORMATION
  Report Type: 
  Country: None (occurrence: None)
  Receive Date: 20071106
  Receipt Date: 20071025
  Transmission Date: 20080405
  Serious: Yes (Hospitalization)
  Sender: FDA-Public Use
  Company Number: ES-PFIZER INC-2007089449

PATIENT
  Age: 74 Year
  Sex: Male

DRUGS (8)
  1. CARDURA [Suspect]
     Indication: HYPERTENSION
     Route: 048
     Dates: start: 20070710, end: 20070713
  2. BARNIDIPINE [Interacting]
     Route: 048
  3. DIOVAN HCT [Interacting]
     Dosage: TEXT:160/25 MG DAILY
     Route: 048
  4. OMEPRAZOLE [Concomitant]
     Route: 048
  5. HEMOVAS [Concomitant]
     Route: 048
  6. LIPLAT [Concomitant]
     Route: 048
  7. PLAVIX [Concomitant]
     Route: 048
  8. ADIRO [Concomitant]
     Route: 048

REACTIONS (2)
  - DRUG INTERACTION [None]
  - TRANSIENT ISCHAEMIC ATTACK [None]
